FAERS Safety Report 4383944-9 (Version None)
Quarter: 2004Q2

REPORT INFORMATION
  Report Type: 
  Country: None (occurrence: None)
  Receive Date: 20040624
  Receipt Date: 20040616
  Transmission Date: 20050107
  Serious: Yes (Hospitalization)
  Sender: FDA-Public Use
  Company Number: PHBS2004JP07975

PATIENT
  Age: 57 Year
  Sex: Male

DRUGS (3)
  1. CYCLOSPORINE [Suspect]
     Indication: RENAL TRANSPLANT
     Dosage: 175 MG/D
     Route: 065
  2. PREDONINE [Suspect]
     Indication: RENAL TRANSPLANT
     Dosage: 7.5 MG/D
     Route: 065
  3. MIZORIBINE [Suspect]
     Indication: RENAL TRANSPLANT
     Dosage: 300 MG/D
     Route: 065

REACTIONS (16)
  - ABDOMINAL PAIN LOWER [None]
  - ACIDOSIS [None]
  - BLOOD CREATINE PHOSPHOKINASE INCREASED [None]
  - BLOOD LACTATE DEHYDROGENASE INCREASED [None]
  - CONSTIPATION [None]
  - DISSEMINATED INTRAVASCULAR COAGULATION [None]
  - INTESTINAL OPERATION [None]
  - LAPAROTOMY [None]
  - LARGE INTESTINE PERFORATION [None]
  - LEUKOPENIA [None]
  - MUSCLE RIGIDITY [None]
  - PERITONITIS [None]
  - PNEUMONIA [None]
  - PROSTATITIS [None]
  - RECTAL PERFORATION [None]
  - SEPSIS [None]
